FAERS Safety Report 6962019-6 (Version None)
Quarter: 2010Q3

REPORT INFORMATION
  Report Type: 
  Country: None (occurrence: None)
  Receive Date: 20100902
  Receipt Date: 20100827
  Transmission Date: 20110219
  Serious: Yes (Other)
  Sender: FDA-Public Use
  Company Number: UY-BAYER-200923730LA

PATIENT
  Age: 20 Year
  Sex: Female
  Weight: 62 kg

DRUGS (1)
  1. YASMIN [Suspect]
     Indication: CONTRACEPTION
     Route: 048
     Dates: start: 20090701, end: 20091101

REACTIONS (2)
  - PREGNANCY ON ORAL CONTRACEPTIVE [None]
  - PREMATURE LABOUR [None]
